FAERS Safety Report 15554484 (Version 2)
Quarter: 2019Q3

REPORT INFORMATION
  Report Type: Other
  Country: NL (occurrence: NL)
  Receive Date: 20181026
  Receipt Date: 20190817
  Transmission Date: 20191004
  Serious: Yes (Other)
  Sender: FDA-Public Use
  Company Number: NL-APOTEX-2018AP023270

PATIENT
  Age: 19 Year
  Sex: Female
  Weight: 42 kg

DRUGS (1)
  1. LEVETIRACETAM 500 [Suspect]
     Active Substance: LEVETIRACETAM
     Indication: EPILEPSY
     Dosage: 1500 MG, QD (1500MG/DAG)
     Route: 065
     Dates: start: 201606, end: 2018

REACTIONS (1)
  - Renal impairment [Not Recovered/Not Resolved]

NARRATIVE: CASE EVENT DATE: 2017
